FAERS Safety Report 17212123 (Version 3)
Quarter: 2020Q1

REPORT INFORMATION
  Report Type: Spontaneous
  Country: AR (occurrence: AR)
  Receive Date: 20191230
  Receipt Date: 20200217
  Transmission Date: 20200409
  Serious: Yes (Other)
  Sender: FDA-Public Use
  Company Number: AR-AMGEN-ARGSP2019215384

PATIENT
  Age: 52 Year
  Sex: Female

DRUGS (1)
  1. ENBREL [Suspect]
     Active Substance: ETANERCEPT
     Indication: RHEUMATOID ARTHRITIS
     Dosage: 50 MILLIGRAM, QWK
     Route: 065
     Dates: start: 20140101

REACTIONS (9)
  - Memory impairment [Recovering/Resolving]
  - Eye disorder [Recovering/Resolving]
  - Paraesthesia [Recovering/Resolving]
  - Facial paralysis [Recovering/Resolving]
  - Language disorder [Recovering/Resolving]
  - Pain [Recovering/Resolving]
  - Dysgraphia [Recovering/Resolving]
  - Neck pain [Recovering/Resolving]
  - Bone pain [Recovering/Resolving]

NARRATIVE: CASE EVENT DATE: 20190823
